FAERS Safety Report 5811147-7 (Version None)
Quarter: 2008Q3

REPORT INFORMATION
  Report Type: 
  Country: None (occurrence: None)
  Receive Date: 20080710
  Receipt Date: 20080625
  Transmission Date: 20090109
  Serious: Yes (Hospitalization)
  Sender: FDA-Public Use
  Company Number: S08-GER-00104-02

PATIENT
  Sex: Male
  Weight: 3.75 kg

DRUGS (2)
  1. CITALOPRAM HYDROBROMIDE [Suspect]
     Dosage: 20 MG QD TRANSPLACENTAL
     Route: 064
     Dates: end: 20080313
  2. PAROXETINE [Concomitant]

REACTIONS (5)
  - APGAR SCORE LOW [None]
  - BRADYCARDIA NEONATAL [None]
  - INFANTILE APNOEIC ATTACK [None]
  - MATERNAL DRUGS AFFECTING FOETUS [None]
  - PREMATURE BABY [None]
